FAERS Safety Report 9556210 (Version 1)
Quarter: 2013Q3

REPORT INFORMATION
  Report Type: Report from Study
  Country: US (occurrence: US)
  Receive Date: 20130926
  Receipt Date: 20130926
  Transmission Date: 20140515
  Serious: Yes (Hospitalization, Other)
  Sender: FDA-Public Use
  Company Number: US-JNJFOC-20130911611

PATIENT
  Age: 18 Year
  Sex: Male
  Weight: 70.31 kg

DRUGS (13)
  1. REMICADE [Suspect]
     Indication: COLITIS ULCERATIVE
     Route: 042
     Dates: start: 20130821
  2. SOLU MEDROL [Concomitant]
     Indication: INFLAMMATION
     Route: 065
     Dates: start: 2013, end: 201309
  3. ZOFRAN [Concomitant]
     Route: 042
     Dates: start: 2013
  4. PHENERGAN [Concomitant]
     Route: 042
  5. LEVAQUIN [Concomitant]
     Route: 065
  6. FLAGYL [Concomitant]
     Route: 065
  7. PEPCID [Concomitant]
     Route: 065
  8. MORPHINE [Concomitant]
     Route: 065
  9. SERTRALINE [Concomitant]
     Route: 065
  10. ACETAMINOPHEN [Concomitant]
     Route: 065
  11. LOVENOX [Concomitant]
     Route: 065
  12. DIAZEPAM [Concomitant]
     Route: 065
  13. DILAUDID [Concomitant]
     Route: 065

REACTIONS (5)
  - Pulmonary embolism [Unknown]
  - Pleural effusion [Unknown]
  - Neuropathy peripheral [Not Recovered/Not Resolved]
  - Abnormal loss of weight [Unknown]
  - Headache [Recovered/Resolved]
